FAERS Safety Report 14509942 (Version 1)
Quarter: 2018Q1

REPORT INFORMATION
  Report Type: Report from Study
  Country: MX (occurrence: MX)
  Receive Date: 20180209
  Receipt Date: 20180209
  Transmission Date: 20180509
  Serious: Yes (Hospitalization)
  Sender: FDA-Public Use
  Company Number: PHHY2018MX019639

PATIENT
  Age: 77 Year
  Sex: Female
  Weight: 80 kg

DRUGS (10)
  1. ALLOPURINOL. [Concomitant]
     Active Substance: ALLOPURINOL
     Indication: PRODUCT USED FOR UNKNOWN INDICATION
     Dosage: 1 DF, UNK (TABLET, IN THE MORNING)
     Route: 048
     Dates: start: 2016
  2. MICCIL [Concomitant]
     Indication: DYSURIA
     Dosage: 1 DF, TID (IN THE MORNING. AFTERNOON AND NIGHT)
     Route: 065
     Dates: start: 201712
  3. ATORVASTATIN [Suspect]
     Active Substance: ATORVASTATIN
     Indication: BLOOD TRIGLYCERIDES ABNORMAL
     Dosage: 1 DF, QHS
     Route: 048
     Dates: start: 201601
  4. OMEPRAZOLE. [Concomitant]
     Active Substance: OMEPRAZOLE
     Indication: GASTRITIS
     Dosage: 1 DF, UNK  (TABLET, IN THE MORNING)
     Route: 048
     Dates: start: 201707
  5. ZANIDIP [Concomitant]
     Active Substance: LERCANIDIPINE HYDROCHLORIDE
     Indication: BLOOD PRESSURE ABNORMAL
     Dosage: 1 DF, TID (IN THE MORNING, AFTERNOON AND NIGHT)
     Route: 065
     Dates: start: 201712
  6. EUTIROX [Concomitant]
     Active Substance: LEVOTHYROXINE SODIUM
     Indication: THYROID DISORDER
     Dosage: 1 DF, UNK (TABLET, IN THE MORNING)
     Route: 048
     Dates: start: 201701
  7. TRAYENTA [Concomitant]
     Active Substance: LINAGLIPTIN
     Indication: DIABETES MELLITUS
     Dosage: 1 DF, UNK (TABLET, IN THE MORNING)
     Route: 048
     Dates: start: 201712
  8. INSULIN [Concomitant]
     Active Substance: INSULIN NOS
     Indication: DIABETES MELLITUS
     Dosage: 30 U, UNK (20 U IN THE MORNING AND 10U AT NIGHT)
     Route: 065
     Dates: start: 201601
  9. FOLIC ACID. [Concomitant]
     Active Substance: FOLIC ACID
     Indication: PROPHYLAXIS
     Dosage: 1 DF, UNK (IN THE MEAL)
     Route: 065
     Dates: start: 201601
  10. PENTOXIFYLLINE. [Concomitant]
     Active Substance: PENTOXIFYLLINE
     Indication: PROPHYLAXIS
     Route: 065

REACTIONS (2)
  - Peripheral swelling [Recovered/Resolved]
  - Fluid retention [Recovered/Resolved]

NARRATIVE: CASE EVENT DATE: 201801
